FAERS Safety Report 8327848-5 (Version None)
Quarter: 2012Q2

REPORT INFORMATION
  Report Type: 
  Country: None (occurrence: None)
  Receive Date: 20120502
  Receipt Date: 20120418
  Transmission Date: 20120825
  Serious: Yes (Death)
  Sender: FDA-Public Use
  Company Number: CN-JNJFOC-20110907074

PATIENT
  Sex: Male
  Weight: 50 kg

DRUGS (7)
  1. GALANTAMINE HYDROBROMIDE [Suspect]
     Route: 048
     Dates: start: 20110701, end: 20110801
  2. NOVOLIN R [Concomitant]
     Indication: BLOOD GLUCOSE ABNORMAL
     Dosage: 12 U IN MORNING AND 6 U IN NIGHT
     Route: 058
  3. GALANTAMINE HYDROBROMIDE [Suspect]
     Indication: DEMENTIA ALZHEIMER'S TYPE
     Route: 048
     Dates: start: 20110822, end: 20110830
  4. GALANTAMINE HYDROBROMIDE [Suspect]
     Indication: SENILE DEMENTIA
     Route: 048
     Dates: start: 20110822, end: 20110830
  5. GALANTAMINE HYDROBROMIDE [Suspect]
     Route: 048
     Dates: start: 20110701, end: 20110801
  6. OLANZAPINE [Concomitant]
     Route: 048
  7. ENALAPRIL MALEATE [Concomitant]
     Indication: BLOOD PRESSURE
     Dosage: MORNING
     Route: 048

REACTIONS (2)
  - CHOLECYSTITIS ACUTE [None]
  - CHOLELITHIASIS [None]
